FAERS Safety Report 11250989 (Version 1)
Quarter: 2015Q3

REPORT INFORMATION
  Report Type: Spontaneous
  Country: US (occurrence: US)
  Receive Date: 20150708
  Receipt Date: 20150708
  Transmission Date: 20151125
  Serious: Yes (Hospitalization, Other)
  Sender: FDA-Public Use
  Company Number: US-ELI_LILLY_AND_COMPANY-US201105006604

PATIENT
  Age: 57 Year
  Sex: Male
  Weight: 80.27 kg

DRUGS (11)
  1. GEMZAR [Suspect]
     Active Substance: GEMCITABINE HYDROCHLORIDE
     Dosage: 1000 MG/M2, DAY 1, 8 AND 15, OF 28 DAY CYCLE
     Route: 042
     Dates: start: 20110111
  2. CISPLATIN. [Concomitant]
     Active Substance: CISPLATIN
     Indication: BLADDER CANCER
     Dosage: 70 MG/M2, DAY 1 EVERY 28 DAYS
     Route: 065
  3. GEMZAR [Suspect]
     Active Substance: GEMCITABINE HYDROCHLORIDE
     Dosage: 1000 MG/M2, DAY 1, 8 AND 15, OF 28 DAY CYCLE
     Dates: start: 20110302
  4. ASA [Concomitant]
     Active Substance: ASPIRIN
     Dosage: 8 MG, QD
     Route: 048
  5. GEMZAR [Suspect]
     Active Substance: GEMCITABINE HYDROCHLORIDE
     Dosage: 1000 MG/M2, DAY 1, 8 AND 15, OF 28 DAY CYCLE
     Route: 042
     Dates: start: 20110118
  6. GEMZAR [Suspect]
     Active Substance: GEMCITABINE HYDROCHLORIDE
     Dosage: 1000 MG/M2, DAY 1, 8 AND 15, OF 28 DAY CYCLE
     Route: 042
     Dates: start: 20110104
  7. GEMZAR [Suspect]
     Active Substance: GEMCITABINE HYDROCHLORIDE
     Dosage: 1000 MG/M2, DAY 1, 8 AND 15, OF 28 DAY CYCLE
     Route: 042
     Dates: start: 20110201
  8. GEMZAR [Suspect]
     Active Substance: GEMCITABINE HYDROCHLORIDE
     Dosage: 1000 MG/M2, DAY 1, 8 AND 15, OF 28 DAY CYCLE
     Route: 042
     Dates: start: 20101208
  9. GEMZAR [Suspect]
     Active Substance: GEMCITABINE HYDROCHLORIDE
     Dosage: 1000 MG/M2, DAY 1, 8 AND 15, OF 28 DAY CYCLE
     Route: 042
     Dates: start: 20101217
  10. TOPROL XL [Concomitant]
     Active Substance: METOPROLOL SUCCINATE
     Dosage: UNK, QD
     Route: 065
  11. GEMZAR [Suspect]
     Active Substance: GEMCITABINE HYDROCHLORIDE
     Indication: BLADDER CANCER
     Dosage: 1000 MG/M2, DAY 1, 8 AND 15, OF 28 DAY CYCLE
     Dates: start: 20101129

REACTIONS (1)
  - Acute kidney injury [Recovered/Resolved]

NARRATIVE: CASE EVENT DATE: 20101206
